FAERS Safety Report 9360983 (Version 1)
Quarter: 2013Q2

REPORT INFORMATION
  Report Type: Spontaneous
  Country: CA (occurrence: CA)
  Receive Date: 20130621
  Receipt Date: 20130621
  Transmission Date: 20140414
  Serious: Yes (Other)
  Sender: FDA-Public Use
  Company Number: CA-TEVA-414114USA

PATIENT
  Age: 14 Year
  Sex: Female
  Weight: 43 kg

DRUGS (3)
  1. TEVA-DIVALPROEX [Suspect]
     Dosage: 750 MILLIGRAM DAILY; ENTERIC COATED
     Route: 048
  2. CONCERTA [Concomitant]
     Dosage: EXTENDED RELEASE
  3. PROZAC [Concomitant]

REACTIONS (4)
  - Convulsion [Recovered/Resolved]
  - Condition aggravated [Recovered/Resolved]
  - Drug ineffective [Recovered/Resolved]
  - Product substitution issue [Recovered/Resolved]
